FAERS Safety Report 12382013 (Version 1)
Quarter: 2016Q2

REPORT INFORMATION
  Report Type: Spontaneous
  Country: ES (occurrence: ES)
  Receive Date: 20160518
  Receipt Date: 20160518
  Transmission Date: 20160815
  Serious: Yes (Death)
  Sender: FDA-Public Use
  Company Number: ES-CELGENEUS-ESP-2016051110

PATIENT
  Age: 71 Year
  Sex: Male

DRUGS (1)
  1. REVLIMID [Suspect]
     Active Substance: LENALIDOMIDE
     Indication: MYELODYSPLASTIC SYNDROME
     Dosage: DOSE RANGE 210MG
     Route: 048
     Dates: start: 20110404, end: 20150526

REACTIONS (1)
  - Oesophageal cancer metastatic [Fatal]

NARRATIVE: CASE EVENT DATE: 20141128
